FAERS Safety Report 6038165-0 (Version None)
Quarter: 2009Q1

REPORT INFORMATION
  Report Type: 
  Country: None (occurrence: None)
  Receive Date: 20090115
  Receipt Date: 20090102
  Transmission Date: 20090719
  Serious: Yes (Hospitalization)
  Sender: FDA-Public Use
  Company Number: US-BAYER-200910153NA

PATIENT
  Age: 78 Year
  Sex: Male

DRUGS (8)
  1. CAMPATH [Suspect]
     Indication: CHRONIC LYMPHOCYTIC LEUKAEMIA
     Dosage: TOTAL DAILY DOSE: 3 MG  UNIT DOSE: 3 MG
     Route: 058
     Dates: start: 20080925, end: 20080925
  2. CAMPATH [Suspect]
     Dosage: TOTAL DAILY DOSE: 3 MG  UNIT DOSE: 3 MG
     Route: 058
     Dates: start: 20080929, end: 20080929
  3. CAMPATH [Suspect]
     Dosage: TOTAL DAILY DOSE: 3 MG  UNIT DOSE: 3 MG
     Route: 058
     Dates: start: 20081008, end: 20081008
  4. CAMPATH [Suspect]
     Dosage: TOTAL DAILY DOSE: 3 MG  UNIT DOSE: 3 MG
     Route: 058
     Dates: start: 20081016, end: 20081016
  5. CAMPATH [Suspect]
     Dosage: TOTAL DAILY DOSE: 10 MG  UNIT DOSE: 10 MG
     Route: 058
     Dates: start: 20081023, end: 20081023
  6. CAMPATH [Suspect]
     Dosage: TOTAL DAILY DOSE: 10 MG  UNIT DOSE: 10 MG
     Route: 058
     Dates: start: 20081030, end: 20081030
  7. CAMPATH [Suspect]
     Dosage: TOTAL DAILY DOSE: 10 MG  UNIT DOSE: 10 MG
     Route: 058
     Dates: start: 20081106, end: 20081106
  8. CAMPATH [Suspect]
     Dosage: TOTAL DAILY DOSE: 10 MG  UNIT DOSE: 10 MG
     Route: 058
     Dates: start: 20081113, end: 20081113

REACTIONS (1)
  - NEUROPATHY PERIPHERAL [None]
